FAERS Safety Report 14385333 (Version 1)
Quarter: 2018Q1

REPORT INFORMATION
  Report Type: Spontaneous
  Country: US (occurrence: US)
  Receive Date: 20180115
  Receipt Date: 20180115
  Transmission Date: 20180509
  Serious: Yes (Other)
  Sender: FDA-Public Use
  Company Number: US-SA-2016SA228768

PATIENT
  Age: 55 Year
  Sex: Female
  Weight: 72.57 kg

DRUGS (6)
  1. LEVOTHYROXINE. [Concomitant]
     Active Substance: LEVOTHYROXINE
     Route: 065
     Dates: start: 2014
  2. TAMOXIFEN [Concomitant]
     Active Substance: TAMOXIFEN
     Route: 065
     Dates: start: 20150528
  3. TAXOTERE [Suspect]
     Active Substance: DOCETAXEL
     Indication: BREAST CANCER FEMALE
     Dosage: DOSAGE: 135-155 MG
     Route: 051
     Dates: start: 20150527, end: 20150527
  4. TAXOTERE [Suspect]
     Active Substance: DOCETAXEL
     Indication: BREAST CANCER FEMALE
     Dosage: DOSAGE: 135-155 MG
     Route: 051
     Dates: start: 20150209, end: 20150209
  5. METOPROLOL TARTRATE. [Concomitant]
     Active Substance: METOPROLOL TARTRATE
     Route: 065
     Dates: start: 2014
  6. TAMOXIFEN [Concomitant]
     Active Substance: TAMOXIFEN
     Route: 065
     Dates: start: 20150501, end: 20150527

REACTIONS (6)
  - Alopecia [Not Recovered/Not Resolved]
  - Pain [Unknown]
  - Emotional distress [Unknown]
  - Psychological trauma [Unknown]
  - Anxiety [Unknown]
  - Impaired quality of life [Unknown]

NARRATIVE: CASE EVENT DATE: 20151127
